APPROVED DRUG PRODUCT: MORPHINE SULFATE
Active Ingredient: MORPHINE SULFATE
Strength: 30MG
Dosage Form/Route: TABLET;ORAL
Application: A210610 | Product #002 | TE Code: AB
Applicant: UPSHER SMITH LABORATORIES LLC
Approved: Jul 22, 2019 | RLD: No | RS: No | Type: RX